FAERS Safety Report 9530228 (Version 1)
Quarter: 2013Q3

REPORT INFORMATION
  Report Type: Spontaneous
  Country: US (occurrence: US)
  Receive Date: 20130917
  Receipt Date: 20130917
  Transmission Date: 20140515
  Serious: Yes (Other)
  Sender: FDA-Public Use
  Company Number: US-B.I. PHARMACEUTICALS,INC./RIDGEFIELD-2013-BI-28589BP

PATIENT
  Age: 87 Year
  Sex: 0

DRUGS (2)
  1. PRADAXA [Suspect]
     Indication: ATRIAL FIBRILLATION
     Dosage: 600 MG
     Route: 048
     Dates: start: 201308, end: 201308
  2. PRADAXA [Suspect]
     Dosage: 150 MG
     Route: 048
     Dates: start: 201308

REACTIONS (1)
  - Cerebrovascular accident [Unknown]
